FAERS Safety Report 5765367-0 (Version None)
Quarter: 2008Q2

REPORT INFORMATION
  Report Type: 
  Country: None (occurrence: None)
  Receive Date: 20080609
  Receipt Date: 20080609
  Transmission Date: 20081010
  Serious: Yes (Hospitalization, Disabling)
  Sender: FDA-Public Use
  Company Number: None

PATIENT
  Age: 92 Year
  Sex: Female
  Weight: 27 kg

DRUGS (10)
  1. DIGOXIN [Suspect]
     Indication: CARDIAC FAILURE CONGESTIVE
     Dosage: 0.25MG DAILY PO (DURATION: CHRONIC)
     Route: 048
  2. SENNA  8.6MG [Suspect]
     Indication: CONSTIPATION
     Dosage: 17.2MG DAILY PO (DURATION: CHRONIC)
     Route: 048
  3. BISACODYL [Concomitant]
  4. CELEBREX [Concomitant]
  5. ENALAPRIL MALEATE [Concomitant]
  6. IMDUR [Concomitant]
  7. MILK OF MAGNESIA [Concomitant]
  8. RANITIDINE HCL [Concomitant]
  9. TYLENOL [Concomitant]
  10. TYLENOL W/ CODEINE NO. 3 [Concomitant]

REACTIONS (7)
  - ANOREXIA [None]
  - CARDIOACTIVE DRUG LEVEL INCREASED [None]
  - DRUG INTERACTION [None]
  - INCORRECT DOSE ADMINISTERED [None]
  - NAUSEA [None]
  - VOMITING [None]
  - WEIGHT DECREASED [None]
